FAERS Safety Report 7600667-0 (Version None)
Quarter: 2011Q2

REPORT INFORMATION
  Report Type: 
  Country: None (occurrence: None)
  Receive Date: 20110627
  Receipt Date: 20100611
  Transmission Date: 20111010
  Serious: Yes (Disabling)
  Sender: FDA-Public Use
  Company Number: APP201000536

PATIENT
  Age: 27 Year
  Sex: Male

DRUGS (3)
  1. SENSORCAINE [Suspect]
     Indication: MUSCULOSKELETAL PAIN
     Dosage: 100 ML, 2 ML/HR CONTINUOUS VIA PUMP, INTRA-ARTICULAR
     Route: 014
     Dates: start: 20071214
  2. I-FLOW ON-Q PAINBUSTER [Suspect]
     Indication: MUSCULOSKELETAL PAIN
     Dates: start: 20071214
  3. ANCEF [Concomitant]

REACTIONS (2)
  - CARTILAGE INJURY [None]
  - MUSCULOSKELETAL PAIN [None]
